FAERS Safety Report 16427334 (Version 1)
Quarter: 2019Q2

REPORT INFORMATION
  Report Type: Spontaneous
  Country: JP (occurrence: JP)
  Receive Date: 20190613
  Receipt Date: 20190613
  Transmission Date: 20190711
  Serious: Yes (Other)
  Sender: FDA-Public Use
  Company Number: JP-CELGENEUS-JPN-20190604845

PATIENT
  Age: 30 Year
  Sex: Male

DRUGS (2)
  1. ISTODAX [Suspect]
     Active Substance: ROMIDEPSIN
     Route: 041
     Dates: start: 201906
  2. ISTODAX [Suspect]
     Active Substance: ROMIDEPSIN
     Indication: PERIPHERAL T-CELL LYMPHOMA UNSPECIFIED
     Route: 041
     Dates: start: 20190604, end: 201906

REACTIONS (2)
  - Bone marrow failure [Recovering/Resolving]
  - Hepatic function abnormal [Recovering/Resolving]

NARRATIVE: CASE EVENT DATE: 201906
